FAERS Safety Report 15324690 (Version 1)
Quarter: 2018Q3

REPORT INFORMATION
  Report Type: Spontaneous
  Country: AU (occurrence: AU)
  Receive Date: 20180828
  Receipt Date: 20180828
  Transmission Date: 20181010
  Serious: Yes (Hospitalization)
  Sender: FDA-Public Use
  Company Number: AU-AMGEN-AUSSP2018096891

PATIENT
  Age: 62 Year
  Sex: Male
  Weight: 118 kg

DRUGS (4)
  1. OXALIPLATIN. [Concomitant]
     Active Substance: OXALIPLATIN
     Indication: COLORECTAL CANCER METASTATIC
     Dosage: 205 MG, Q2WK
     Dates: start: 20171117, end: 20180403
  2. VECTIBIX [Suspect]
     Active Substance: PANITUMUMAB
     Indication: COLORECTAL CANCER METASTATIC
     Dosage: 705 MG, Q2WK (700 AND 5MG)
     Route: 042
     Dates: start: 20171117, end: 20180727
  3. FLUOROURACIL. [Concomitant]
     Active Substance: FLUOROURACIL
     Dosage: 5830 MG, Q2WK (VIA 46HR INFUSOR)
     Dates: start: 20171117, end: 20180403
  4. FLUOROURACIL. [Concomitant]
     Active Substance: FLUOROURACIL
     Indication: COLORECTAL CANCER METASTATIC
     Dosage: 972 MG, Q2WK
     Dates: start: 20171117, end: 20180403

REACTIONS (2)
  - Wrong technique in product usage process [Unknown]
  - Rash generalised [Not Recovered/Not Resolved]

NARRATIVE: CASE EVENT DATE: 20171206
